FAERS Safety Report 18092874 (Version 9)
Quarter: 2021Q3

REPORT INFORMATION
  Report Type: Report from Study
  Country: US (occurrence: US)
  Receive Date: 20200730
  Receipt Date: 20210721
  Transmission Date: 20211014
  Serious: No
  Sender: FDA-Public Use
  Company Number: NVSC2020US206847

PATIENT
  Age: 68 Year
  Sex: Female
  Weight: 72.56 kg

DRUGS (10)
  1. TREPROSTINIL. [Suspect]
     Active Substance: TREPROSTINIL
     Dosage: UNK
     Route: 065
  2. TREPROSTINIL. [Suspect]
     Active Substance: TREPROSTINIL
     Dosage: UNK (42 NG/KG/MIN) CONTINUOUS
     Route: 042
     Dates: start: 20201113
  3. TREPROSTINIL. [Suspect]
     Active Substance: TREPROSTINIL
     Indication: PULMONARY ARTERIAL HYPERTENSION
     Dosage: UNK (36 NG/KG/MIN)
     Route: 042
     Dates: start: 20200605
  4. TREPROSTINIL. [Suspect]
     Active Substance: TREPROSTINIL
     Dosage: (40 NG/KG/MIN), CONTINUOUS
     Route: 042
     Dates: start: 20200605
  5. TREPROSTINIL. [Suspect]
     Active Substance: TREPROSTINIL
     Dosage: UNK (42 NG/KG/MIN) CONTINUOUS
     Route: 042
     Dates: start: 20200605
  6. AMBRISENTAN [Concomitant]
     Active Substance: AMBRISENTAN
     Indication: PRODUCT USED FOR UNKNOWN INDICATION
     Dosage: UNK
     Route: 065
  7. SILDENAFIL. [Concomitant]
     Active Substance: SILDENAFIL
     Indication: PRODUCT USED FOR UNKNOWN INDICATION
     Dosage: UNK
     Route: 065
  8. TREPROSTINIL. [Suspect]
     Active Substance: TREPROSTINIL
     Dosage: UNK
     Route: 065
  9. TREPROSTINIL. [Suspect]
     Active Substance: TREPROSTINIL
     Dosage: UNK (50NG/KG/MIN), CONT
     Route: 042
     Dates: start: 202102
  10. TREPROSTINIL. [Suspect]
     Active Substance: TREPROSTINIL
     Dosage: UNK (40 NG/KG/MIN) CONTINUOS
     Route: 042
     Dates: start: 20200605

REACTIONS (21)
  - Alopecia [Unknown]
  - Epistaxis [Unknown]
  - Dyspnoea [Unknown]
  - Dizziness [Unknown]
  - Hypotension [Unknown]
  - Drug ineffective [Unknown]
  - Chest discomfort [Unknown]
  - Abdominal discomfort [Unknown]
  - Gait disturbance [Unknown]
  - Diarrhoea [Unknown]
  - Feeling abnormal [Unknown]
  - Oxygen saturation decreased [Unknown]
  - Somnolence [Unknown]
  - Pain in jaw [Unknown]
  - Tooth infection [Unknown]
  - Nasal congestion [Unknown]
  - Hypersensitivity [Unknown]
  - Toothache [Unknown]
  - Decreased appetite [Unknown]
  - Flatulence [Unknown]
  - Oxygen saturation abnormal [Unknown]

NARRATIVE: CASE EVENT DATE: 202006
